FAERS Safety Report 21359050 (Version 4)
Quarter: 2023Q1

REPORT INFORMATION
  Report Type: Spontaneous
  Country: DE (occurrence: DE)
  Receive Date: 20220921
  Receipt Date: 20230104
  Transmission Date: 20230417
  Serious: Yes (Other)
  Sender: FDA-Public Use
  Company Number: DE-BRISTOL-MYERS SQUIBB COMPANY-2022-063223

PATIENT
  Age: 80 Year
  Sex: Female
  Weight: 62 kg

DRUGS (6)
  1. DILTIAZEM [Suspect]
     Active Substance: DILTIAZEM
     Indication: Blood pressure abnormal
     Dosage: UNK
     Route: 065
  2. ELIQUIS [Suspect]
     Active Substance: APIXABAN
     Indication: Cerebrovascular accident prophylaxis
     Dosage: 5 MG, BID (0.5 DAY) (5 MG/DRUG_INTERVAL_DOSAGE)
     Route: 065
     Dates: start: 202109
  3. VERAPAMIL HYDROCHLORIDE [Suspect]
     Active Substance: VERAPAMIL HYDROCHLORIDE
     Indication: Blood pressure abnormal
     Dosage: UNK, 3X/DAY
     Route: 065
  4. VERAPAMIL HYDROCHLORIDE [Suspect]
     Active Substance: VERAPAMIL HYDROCHLORIDE
     Dosage: UNK
     Route: 065
  5. VERAPAMIL HYDROCHLORIDE [Suspect]
     Active Substance: VERAPAMIL HYDROCHLORIDE
     Dosage: 0.33 UNK, TID, VERAHEXAL 80
     Route: 048
     Dates: start: 20220803
  6. TORSEMIDE [Concomitant]
     Active Substance: TORSEMIDE
     Indication: Product used for unknown indication
     Dosage: QD, 1 DAY, IN THE MORNINGS
     Route: 065

REACTIONS (7)
  - Aortic valve incompetence [Unknown]
  - Atrial fibrillation [Not Recovered/Not Resolved]
  - Arrhythmia [Unknown]
  - Visual impairment [Not Recovered/Not Resolved]
  - Heart rate increased [Not Recovered/Not Resolved]
  - Hypertensive heart disease [Unknown]
  - Epistaxis [Unknown]
